FAERS Safety Report 25904439 (Version 2)
Quarter: 2025Q4

REPORT INFORMATION
  Report Type: Report from Study
  Country: US (occurrence: US)
  Receive Date: 20251010
  Receipt Date: 20251211
  Transmission Date: 20260118
  Serious: Yes (Hospitalization, Other)
  Sender: ALEXION PHARMACEUTICALS
  Company Number: US-AstraZeneca-CH-00966363A

PATIENT
  Sex: Female

DRUGS (1)
  1. ULTOMIRIS [Suspect]
     Active Substance: RAVULIZUMAB-CWVZ
     Indication: Neuromyelitis optica spectrum disorder
     Dosage: UNK

REACTIONS (7)
  - Neuromyelitis optica spectrum disorder [Recovering/Resolving]
  - Hallucination [Unknown]
  - Spinal osteoarthritis [Unknown]
  - Headache [Unknown]
  - Pain in extremity [Unknown]
  - Fatigue [Unknown]
  - Drug ineffective [Unknown]
